FAERS Safety Report 10404928 (Version 1)
Quarter: 2014Q3

REPORT INFORMATION
  Report Type: Spontaneous
  Country: US (occurrence: US)
  Receive Date: 20140825
  Receipt Date: 20140825
  Transmission Date: 20150326
  Serious: Yes (Other)
  Sender: FDA-Public Use
  Company Number: US-BEH-2014044572

PATIENT
  Sex: Male

DRUGS (2)
  1. CARIMUNE [Suspect]
     Active Substance: HUMAN IMMUNOGLOBULIN G
     Indication: B-CELL SMALL LYMPHOCYTIC LYMPHOMA
  2. CARIMUNE [Suspect]
     Active Substance: HUMAN IMMUNOGLOBULIN G
     Indication: IMMUNE THROMBOCYTOPENIC PURPURA

REACTIONS (2)
  - Herpes zoster [Unknown]
  - Leukaemia [Unknown]

NARRATIVE: CASE EVENT DATE: 2014
